FAERS Safety Report 18517441 (Version 1)
Quarter: 2020Q4

REPORT INFORMATION
  Report Type: Spontaneous
  Country: US (occurrence: US)
  Receive Date: 20201118
  Receipt Date: 20201118
  Transmission Date: 20210114
  Serious: Yes (Death, Life-Threatening, Hospitalization, Other)
  Sender: FDA-Public Use
  Company Number: US-HORIZON-2020HZN01131

PATIENT
  Age: 43 Year
  Sex: Female

DRUGS (3)
  1. MYCOPHENOLATE MOFETIL. [Suspect]
     Active Substance: MYCOPHENOLATE MOFETIL
     Indication: IMMUNOSUPPRESSANT DRUG THERAPY
     Dosage: REDUCED BY HALF
  2. PREDNISONE. [Suspect]
     Active Substance: PREDNISONE
     Indication: IMMUNOSUPPRESSANT DRUG THERAPY
     Dosage: SEVERAL DOSES; SEE NARRATIVE
  3. BELATACEPT [Suspect]
     Active Substance: BELATACEPT
     Indication: IMMUNOSUPPRESSANT DRUG THERAPY

REACTIONS (18)
  - Disseminated cryptococcosis [Fatal]
  - Muscle necrosis [Fatal]
  - Pneumocystis jirovecii pneumonia [Fatal]
  - Herpes simplex [Fatal]
  - Pneumothorax [Fatal]
  - Meningitis cryptococcal [Fatal]
  - Respiratory failure [Fatal]
  - Pseudomonas infection [Fatal]
  - Atelectasis [Fatal]
  - Klebsiella infection [Fatal]
  - Multiple organ dysfunction syndrome [Fatal]
  - Infective myositis [Fatal]
  - Cyst rupture [Fatal]
  - Cryptococcosis [Fatal]
  - Herpes simplex meningitis [Fatal]
  - Genital herpes simplex [Fatal]
  - Septic shock [Fatal]
  - Mediastinal shift [Fatal]
